FAERS Safety Report 21920815 (Version 1)
Quarter: 2023Q1

REPORT INFORMATION
  Report Type: Spontaneous
  Country: US (occurrence: US)
  Receive Date: 20230127
  Receipt Date: 20230127
  Transmission Date: 20230417
  Serious: No
  Sender: FDA-Public Use
  Company Number: US-JNJFOC-20230147835

PATIENT
  Sex: Female

DRUGS (2)
  1. ULTRAM [Suspect]
     Active Substance: TRAMADOL HYDROCHLORIDE
     Indication: Product used for unknown indication
     Dosage: THINK 1MG , TABLET
     Route: 065
     Dates: start: 20230110, end: 20230114
  2. VALTREX [Suspect]
     Active Substance: VALACYCLOVIR HYDROCHLORIDE
     Indication: Herpes zoster
     Dosage: THINK 1MG , TABLET
     Route: 065
     Dates: start: 20230110, end: 20230114

REACTIONS (7)
  - Vomiting [Recovering/Resolving]
  - Loss of personal independence in daily activities [Recovering/Resolving]
  - Abdominal discomfort [Recovering/Resolving]
  - Eructation [Recovering/Resolving]
  - Dizziness [Recovering/Resolving]
  - Malaise [Recovering/Resolving]
  - Adverse event [Recovering/Resolving]

NARRATIVE: CASE EVENT DATE: 20230101
